FAERS Safety Report 25966423 (Version 1)
Quarter: 2025Q4

REPORT INFORMATION
  Report Type: Spontaneous
  Country: US (occurrence: US)
  Receive Date: 20251028
  Receipt Date: 20251028
  Transmission Date: 20260117
  Serious: No
  Sender: PADAGIS
  Company Number: US-PADAGIS-2025PAD01322

PATIENT

DRUGS (5)
  1. CLOBETASOL PROPIONATE (EMMOLIENT) [Suspect]
     Active Substance: CLOBETASOL PROPIONATE
     Indication: Benign familial pemphigus
     Dosage: UNK
     Route: 061
  2. TAZAROTENE [Suspect]
     Active Substance: TAZAROTENE
     Indication: Benign familial pemphigus
     Dosage: UNK
     Route: 061
  3. MUPIROCIN [Suspect]
     Active Substance: MUPIROCIN
     Indication: Benign familial pemphigus
     Dosage: UNK
     Route: 061
  4. CALCIPOTRIENE [Suspect]
     Active Substance: CALCIPOTRIENE
     Indication: Benign familial pemphigus
     Dosage: UNK
     Route: 061
  5. BETAMETHASONE\CLOTRIMAZOLE [Suspect]
     Active Substance: BETAMETHASONE\CLOTRIMAZOLE
     Indication: Benign familial pemphigus
     Dosage: UNK
     Route: 061

REACTIONS (2)
  - Therapy partial responder [Unknown]
  - Product use in unapproved indication [Unknown]
